FAERS Safety Report 21537349 (Version 1)
Quarter: 2022Q4

REPORT INFORMATION
  Report Type: Spontaneous
  Country: JP (occurrence: JP)
  Receive Date: 20221101
  Receipt Date: 20221101
  Transmission Date: 20230113
  Serious: Yes (Other)
  Sender: FDA-Public Use
  Company Number: JP-MSD-2210JPN003472J

PATIENT
  Age: 62 Year
  Sex: Male

DRUGS (1)
  1. CANCIDAS [Suspect]
     Active Substance: CASPOFUNGIN ACETATE
     Indication: Antifungal prophylaxis
     Dosage: UNK
     Route: 051

REACTIONS (2)
  - Multiple organ dysfunction syndrome [Unknown]
  - Product use in unapproved indication [Unknown]
